FAERS Safety Report 8293655-5 (Version None)
Quarter: 2012Q2

REPORT INFORMATION
  Report Type: 
  Country: None (occurrence: None)
  Receive Date: 20120418
  Receipt Date: 20120409
  Transmission Date: 20120825
  Serious: No
  Sender: FDA-Public Use
  Company Number: US-BIOGENIDEC-2012BI012616

PATIENT
  Age: 57 Year
  Sex: Female

DRUGS (1)
  1. TYSABRI [Suspect]
     Indication: MULTIPLE SCLEROSIS
     Route: 042
     Dates: start: 20111103, end: 20111201

REACTIONS (7)
  - BACK PAIN [None]
  - MUSCLE TIGHTNESS [None]
  - FATIGUE [None]
  - DYSSTASIA [None]
  - MEMORY IMPAIRMENT [None]
  - IRRITABILITY [None]
  - MOBILITY DECREASED [None]
